FAERS Safety Report 26175004 (Version 1)
Quarter: 2025Q4

REPORT INFORMATION
  Report Type: Spontaneous
  Country: CN (occurrence: CN)
  Receive Date: 20251218
  Receipt Date: 20251218
  Transmission Date: 20260117
  Serious: Yes (Life-Threatening)
  Sender: PFIZER
  Company Number: CN-PFIZER INC-PV202500146605

PATIENT
  Age: 21 Year
  Sex: Female
  Weight: 70 kg

DRUGS (2)
  1. METHOTREXATE SODIUM [Suspect]
     Active Substance: METHOTREXATE SODIUM
     Indication: Ectopic pregnancy
     Dosage: 90 MG
     Route: 030
     Dates: start: 20240820, end: 20240820
  2. MIFEPRISTONE [Suspect]
     Active Substance: MIFEPRISTONE
     Indication: Ectopic pregnancy
     Dosage: 50 MG, 2X/DAY
     Route: 048
     Dates: start: 20240820

REACTIONS (3)
  - Myelosuppression [Recovered/Resolved]
  - Stomatitis [Recovered/Resolved]
  - Off label use [Unknown]
